FAERS Safety Report 9073901 (Version 1)
Quarter: 2013Q1

REPORT INFORMATION
  Report Type: Report from Study
  Country: US (occurrence: US)
  Receive Date: 20130129
  Receipt Date: 20130129
  Transmission Date: 20140127
  Serious: No
  Sender: FDA-Public Use
  Company Number: US-ABBOTT-12P-163-0918431-00

PATIENT
  Age: 56 None
  Sex: Female

DRUGS (4)
  1. HUMIRA 40 MG/0.8 ML PEN [Suspect]
     Indication: RHEUMATOID ARTHRITIS
     Dates: start: 2010
  2. HUMIRA 40 MG/0.8 ML PEN [Suspect]
  3. METHOTREXATE [Concomitant]
     Indication: PRODUCT USED FOR UNKNOWN INDICATION
     Dosage: WEEKLY
     Route: 058
  4. VERAPAMIL [Concomitant]
     Indication: PRODUCT USED FOR UNKNOWN INDICATION

REACTIONS (8)
  - Device malfunction [Unknown]
  - Injection site pain [Unknown]
  - Fatigue [Unknown]
  - Arthritis [Unknown]
  - Accidental exposure to product [Unknown]
  - Drug ineffective [Not Recovered/Not Resolved]
  - Eye pain [Unknown]
  - Drug dose omission [Unknown]
